FAERS Safety Report 6375286-7 (Version None)
Quarter: 2009Q3

REPORT INFORMATION
  Report Type: 
  Country: None (occurrence: None)
  Receive Date: 20090924
  Receipt Date: 20090918
  Transmission Date: 20100115
  Serious: Yes (Other)
  Sender: FDA-Public Use
  Company Number: A0808077A

PATIENT
  Sex: Female

DRUGS (12)
  1. ADVAIR DISKUS 100/50 [Suspect]
     Indication: ASTHMA
     Route: 055
  2. LYRICA [Concomitant]
  3. OXYCONTIN [Concomitant]
  4. COMBIVENT [Concomitant]
  5. ATIVAN [Concomitant]
  6. CRESTOR [Concomitant]
  7. NORTRIPTYLINE HCL [Concomitant]
  8. PRILOSEC [Concomitant]
  9. ACETAMINOPHEN [Concomitant]
  10. CODEINE SULFATE [Concomitant]
  11. ZOMIG [Concomitant]
  12. ULTRAM [Concomitant]

REACTIONS (5)
  - COLLAPSE OF LUNG [None]
  - DRUG INEFFECTIVE [None]
  - DYSPNOEA [None]
  - NASOPHARYNGITIS [None]
  - PNEUMONIA [None]
